FAERS Safety Report 14944847 (Version 1)
Quarter: 2018Q2

REPORT INFORMATION
  Report Type: Spontaneous
  Country: GB (occurrence: GB)
  Receive Date: 20180529
  Receipt Date: 20180529
  Transmission Date: 20180711
  Serious: Yes (Death, Hospitalization, Other)
  Sender: FDA-Public Use
  Company Number: GB-009507513-1805GBR010840

PATIENT
  Age: 70 Year
  Sex: Male

DRUGS (5)
  1. PEMBROLIZUMAB. [Suspect]
     Active Substance: PEMBROLIZUMAB
     Dosage: UNK, CYCLE 2
     Dates: start: 201612
  2. LEVOTHYROXINE SODIUM. [Concomitant]
     Active Substance: LEVOTHYROXINE SODIUM
  3. METFORMIN [Concomitant]
     Active Substance: METFORMIN HYDROCHLORIDE
  4. PEMBROLIZUMAB. [Suspect]
     Active Substance: PEMBROLIZUMAB
     Indication: METASTATIC MALIGNANT MELANOMA
     Dosage: 237.5 MG IN CYCLE 1, CYCLICAL
     Dates: start: 201611
  5. BISOPROLOL [Concomitant]
     Active Substance: BISOPROLOL

REACTIONS (3)
  - Dermatitis allergic [Unknown]
  - Pneumonitis [Fatal]
  - Autoimmune hepatitis [Unknown]

NARRATIVE: CASE EVENT DATE: 201612
